FAERS Safety Report 8322857-4 (Version None)
Quarter: 2012Q2

REPORT INFORMATION
  Report Type: 
  Country: None (occurrence: None)
  Receive Date: 20120426
  Receipt Date: 20120424
  Transmission Date: 20120825
  Serious: No
  Sender: FDA-Public Use
  Company Number: ADR-2009-6359

PATIENT
  Sex: Male

DRUGS (1)
  1. LIORESAL [Suspect]
     Indication: MUSCLE SPASTICITY
     Dosage: 1300 - 370 MCG, DAILY, I
     Route: 037

REACTIONS (11)
  - PRURITUS [None]
  - INJURY [None]
  - DEVICE LEAKAGE [None]
  - RASH MACULAR [None]
  - HEADACHE [None]
  - HYPERTONIA [None]
  - CLONUS [None]
  - SOCIAL AVOIDANT BEHAVIOUR [None]
  - HYPERHIDROSIS [None]
  - PAIN [None]
  - NAUSEA [None]
